FAERS Safety Report 6975313-X (Version None)
Quarter: 2010Q3

REPORT INFORMATION
  Report Type: 
  Country: None (occurrence: None)
  Receive Date: 20100910
  Receipt Date: 20090302
  Transmission Date: 20110219
  Serious: No
  Sender: FDA-Public Use
  Company Number: US-WYE-H08422109

PATIENT
  Age: 73 Year
  Sex: Female
  Weight: 51.3 kg

DRUGS (5)
  1. PRISTIQ [Suspect]
     Indication: ANXIETY
     Route: 048
     Dates: start: 20081201, end: 20090225
  2. PRISTIQ [Suspect]
     Indication: DIABETIC NEUROPATHY
  3. PRAVASTATIN [Concomitant]
  4. CALCIUM [Concomitant]
  5. ACETYLSALICYLIC ACID [Concomitant]

REACTIONS (2)
  - BRONCHITIS [None]
  - PLEURISY [None]
